FAERS Safety Report 7963198 (Version 3)
Quarter: 2013Q4

REPORT INFORMATION
  Report Type: Report from Study
  Country: US (occurrence: US)
  Receive Date: 20110526
  Receipt Date: 20131122
  Transmission Date: 20140711
  Serious: Yes (Hospitalization, Other)
  Sender: FDA-Public Use
  Company Number: US-RB-027755-11

PATIENT
  Age: 29 Year
  Sex: Female

DRUGS (9)
  1. SUBOXONE TABLET [Suspect]
     Route: 060
  2. SUBOXONE TABLET [Suspect]
     Indication: DRUG DEPENDENCE
     Route: 060
     Dates: end: 20101220
  3. SUBOXONE TABLET [Suspect]
     Dosage: STARTED AT A DOSE OF 16 MG DAILY, TAPERED TO 1 MG
     Route: 060
     Dates: start: 20101226
  4. SUBOXONE FILM [Suspect]
     Indication: DRUG DEPENDENCE
     Dosage: SUBOXONE FILM
     Route: 060
  5. SUBOXONE FILM [Suspect]
     Dosage: SUBOXONE FILM, TAPERED FROM 16 MG TO 1 MG DAILY, CUTTING THE FILM
     Route: 060
  6. TRAZODONE [Concomitant]
     Indication: DEPRESSION
     Dosage: DOSING DETAILS UNKNOWN
     Route: 048
  7. LUVOX [Concomitant]
     Indication: DEPRESSION
     Dosage: DOSING DETAILS UNKNOWN
     Route: 048
  8. LUVOX [Concomitant]
     Indication: ANXIETY
     Dosage: DOSING DETAILS UNKNOWN
     Route: 048
  9. LUNESTA [Concomitant]
     Indication: SLEEP DISORDER
     Dosage: DOSING DETAILS UNKNOWN
     Route: 048

REACTIONS (5)
  - Substance abuse [Recovered/Resolved]
  - Bartholin^s cyst [Recovered/Resolved]
  - Drug withdrawal syndrome [Recovered/Resolved]
  - Hyperhidrosis [Recovered/Resolved]
  - Wrong technique in drug usage process [Not Recovered/Not Resolved]
